FAERS Safety Report 23711932 (Version 4)
Quarter: 2024Q3

REPORT INFORMATION
  Report Type: Spontaneous
  Country: CO (occurrence: CO)
  Receive Date: 20240405
  Receipt Date: 20240927
  Transmission Date: 20241017
  Serious: Yes (Hospitalization, Other)
  Sender: REGENERON
  Company Number: CO-SA-SAC20240403001436

PATIENT
  Age: 58 Year
  Sex: Male

DRUGS (1)
  1. PRALUENT [Suspect]
     Active Substance: ALIROCUMAB
     Indication: Type IIa hyperlipidaemia
     Dosage: 75 MG, QOW
     Route: 058

REACTIONS (7)
  - Neoplasm [Unknown]
  - Blood creatinine abnormal [Unknown]
  - Platelet count decreased [Unknown]
  - Varicose vein [Unknown]
  - Angioplasty [Unknown]
  - Prosthesis implantation [Unknown]
  - Skin discolouration [Unknown]

NARRATIVE: CASE EVENT DATE: 20240101
